FAERS Safety Report 16709702 (Version 1)
Quarter: 2019Q4

REPORT INFORMATION
  Report Type: Spontaneous
  Country: US (occurrence: US)
  Receive Date: 20190815
  Receipt Date: 20190815
  Transmission Date: 20200122
  Serious: Yes (Other)
  Sender: FDA-Public Use
  Company Number: None

PATIENT
  Age: 67 Year
  Sex: Female

DRUGS (1)
  1. CARBAMAZEPINE ER TABLET [Suspect]
     Active Substance: CARBAMAZEPINE
     Route: 048
     Dates: start: 20180918, end: 20190530

REACTIONS (4)
  - Fracture [None]
  - Seizure [None]
  - Product substitution issue [None]
  - Fall [None]

NARRATIVE: CASE EVENT DATE: 20190808
